FAERS Safety Report 15917589 (Version 1)
Quarter: 2019Q1

REPORT INFORMATION
  Report Type: Report from Study
  Country: ZA (occurrence: ZA)
  Receive Date: 20190205
  Receipt Date: 20190205
  Transmission Date: 20190417
  Serious: Yes (Life-Threatening)
  Sender: FDA-Public Use
  Company Number: ZA-SAKK-2018SA231014AA

PATIENT
  Age: 52 Year
  Sex: Female

DRUGS (4)
  1. OPTISULIN (INSULIN GLARGINE) [Suspect]
     Active Substance: INSULIN GLARGINE
     Indication: TYPE 2 DIABETES MELLITUS
     Dosage: UNK, QD (AT NIGHT)
     Dates: start: 20180609
  2. OPTISULIN (INSULIN GLARGINE) [Suspect]
     Active Substance: INSULIN GLARGINE
     Dosage: 10 U, QD (AT DINNER)
     Dates: start: 20180723
  3. NO STUDY DRUG GIVEN [Suspect]
     Active Substance: UNSPECIFIED INGREDIENT
     Dosage: UNK
  4. METFORMIN [Concomitant]
     Active Substance: METFORMIN HYDROCHLORIDE
     Dosage: 1000 MG, BID (BEFORE SUPPER, BEFORE BREAKFAST)
     Dates: start: 20180723

REACTIONS (11)
  - Insomnia [Not Recovered/Not Resolved]
  - Product dose omission [Unknown]
  - Nocturia [Unknown]
  - Memory impairment [Recovered/Resolved]
  - Pruritus [Unknown]
  - Product use issue [Unknown]
  - Hypoglycaemia [Recovered/Resolved]
  - Influenza [Not Recovered/Not Resolved]
  - Headache [Not Recovered/Not Resolved]
  - Blood glucose decreased [Unknown]
  - Intentional dose omission [Unknown]

NARRATIVE: CASE EVENT DATE: 20180720
